FAERS Safety Report 8739984 (Version 2)
Quarter: 2012Q4

REPORT INFORMATION
  Report Type: 
  Country: US (occurrence: US)
  Receive Date: 20120823
  Receipt Date: 20120904
  Transmission Date: 20130627
  Serious: Yes (Other)
  Sender: FDA-Public Use
  Company Number: CHPA2012US018286

PATIENT
  Sex: Male

DRUGS (2)
  1. MYOFLEX ANALGESIC CREME [Suspect]
     Indication: SCIATICA
     Dosage: 1-2 times/day, PRN
     Route: 061
  2. DRUG THERAPY NOS [Suspect]
     Indication: PAIN IN EXTREMITY

REACTIONS (11)
  - Transient ischaemic attack [Recovered/Resolved]
  - Rotator cuff syndrome [Recovered/Resolved]
  - Pain in extremity [Recovered/Resolved]
  - Diabetes mellitus [Not Recovered/Not Resolved]
  - Hypertension [Not Recovered/Not Resolved]
  - Arthritis [Not Recovered/Not Resolved]
  - Arthropathy [Unknown]
  - Memory impairment [Not Recovered/Not Resolved]
  - Off label use [Unknown]
  - Therapeutic response unexpected [Unknown]
  - Wrong technique in drug usage process [Unknown]
